FAERS Safety Report 8033711-X (Version None)
Quarter: 2012Q1

REPORT INFORMATION
  Report Type: 
  Country: None (occurrence: None)
  Receive Date: 20120110
  Receipt Date: 20120109
  Transmission Date: 20120608
  Serious: Yes (Other)
  Sender: FDA-Public Use
  Company Number: US-GLAXOSMITHKLINE-A0933280A

PATIENT
  Age: 66 Year
  Sex: Male

DRUGS (3)
  1. SORIATANE [Suspect]
     Indication: PSORIASIS
     Dosage: 25MG PER DAY
     Route: 048
     Dates: start: 20110607, end: 20110619
  2. MICARDIS [Concomitant]
  3. ZOCOR [Concomitant]

REACTIONS (8)
  - JOINT SWELLING [None]
  - GOUT [None]
  - FEELING ABNORMAL [None]
  - SWELLING [None]
  - ARTHRALGIA [None]
  - HAIR GROWTH ABNORMAL [None]
  - FATIGUE [None]
  - CONCOMITANT DISEASE AGGRAVATED [None]
